FAERS Safety Report 7363585-1 (Version None)
Quarter: 2011Q1

REPORT INFORMATION
  Report Type: 
  Country: None (occurrence: None)
  Receive Date: 20110321
  Receipt Date: 20110316
  Transmission Date: 20110831
  Serious: Yes (Other)
  Sender: FDA-Public Use
  Company Number: ES-PFIZER INC-2011033809

PATIENT
  Age: 59 Year
  Sex: Male

DRUGS (3)
  1. LYRICA [Suspect]
     Indication: NEURALGIA
     Dosage: 25 MG, UNK
     Route: 048
     Dates: start: 20100215, end: 20100303
  2. ZYLORIC ^FAES^ [Concomitant]
     Indication: GOUT
     Dosage: 300 MG, UNK
     Route: 048
     Dates: start: 20060107, end: 20100813
  3. LEVOFLOXACIN [Suspect]
     Indication: PYREXIA
     Dosage: 500 MG, UNK
     Route: 048
     Dates: start: 20100215, end: 20100224

REACTIONS (2)
  - TRANSAMINASES INCREASED [None]
  - OEDEMA PERIPHERAL [None]
